FAERS Safety Report 10006943 (Version 1)
Quarter: 2014Q1

REPORT INFORMATION
  Report Type: Spontaneous
  Country: US (occurrence: None)
  Receive Date: 20140312
  Receipt Date: 20140312
  Transmission Date: 20141002
  Serious: Yes (Other)
  Sender: FDA-Public Use
  Company Number: None

PATIENT
  Age: 26 Year
  Sex: Female
  Weight: 86.18 kg

DRUGS (1)
  1. FETZIMA [Suspect]
     Indication: DEPRESSION
     Route: 048
     Dates: start: 20140226, end: 20140311

REACTIONS (4)
  - Sleep terror [None]
  - Panic attack [None]
  - Unevaluable event [None]
  - Movement disorder [None]
